APPROVED DRUG PRODUCT: DOXAZOSIN MESYLATE
Active Ingredient: DOXAZOSIN MESYLATE
Strength: EQ 2MG BASE
Dosage Form/Route: TABLET;ORAL
Application: A212329 | Product #002 | TE Code: AB
Applicant: UNICHEM LABORATORIES LTD
Approved: Jan 10, 2024 | RLD: No | RS: No | Type: RX